FAERS Safety Report 6780613-2 (Version None)
Quarter: 2010Q2

REPORT INFORMATION
  Report Type: 
  Country: None (occurrence: None)
  Receive Date: 20100621
  Receipt Date: 20100609
  Transmission Date: 20101027
  Serious: No
  Sender: FDA-Public Use
  Company Number: US-BIOGENIDEC-2010BI020022

PATIENT
  Age: 42 Year
  Sex: Female

DRUGS (2)
  1. TYSABRI [Suspect]
     Indication: MULTIPLE SCLEROSIS
     Route: 042
     Dates: start: 20061219
  2. LAMICTAL [Concomitant]
     Indication: CONVULSION PROPHYLAXIS

REACTIONS (4)
  - COORDINATION ABNORMAL [None]
  - MEMORY IMPAIRMENT [None]
  - TINNITUS [None]
  - VISUAL IMPAIRMENT [None]
